FAERS Safety Report 14738921 (Version 1)
Quarter: 2018Q2

REPORT INFORMATION
  Report Type: Report from Study
  Country: CO (occurrence: CO)
  Receive Date: 20180410
  Receipt Date: 20180410
  Transmission Date: 20180711
  Serious: Yes (Death, Life-Threatening, Other)
  Sender: FDA-Public Use
  Company Number: CO-AMGEN-COLSL2018047824

PATIENT
  Age: 64 Year
  Sex: Female

DRUGS (1)
  1. VECTIBIX [Suspect]
     Active Substance: PANITUMUMAB
     Indication: COLORECTAL CANCER METASTATIC
     Dosage: 360 MG, Q2WK
     Route: 042
     Dates: start: 20171127, end: 20180109

REACTIONS (1)
  - Death [Fatal]

NARRATIVE: CASE EVENT DATE: 201802
